FAERS Safety Report 9022049 (Version 1)
Quarter: 2013Q1

REPORT INFORMATION
  Report Type: Spontaneous
  Country: IE (occurrence: IE)
  Receive Date: 20130118
  Receipt Date: 20130118
  Transmission Date: 20140127
  Serious: Yes (Other)
  Sender: FDA-Public Use
  Company Number: IE-B.I. PHARMACEUTICALS,INC./RIDGEFIELD-2013-UK-00054UK

PATIENT
  Sex: Female

DRUGS (2)
  1. MICARDIS [Suspect]
     Indication: HYPERTENSION
     Dosage: 20 MG
  2. ELTROXIN [Concomitant]

REACTIONS (6)
  - Hypothyroidism [Unknown]
  - Dizziness [Unknown]
  - Pain [Unknown]
  - Pain [Unknown]
  - Sinusitis [Unknown]
  - Nasopharyngitis [Unknown]
